FAERS Safety Report 4896137-3 (Version None)
Quarter: 2006Q1

REPORT INFORMATION
  Report Type: 
  Country: None (occurrence: None)
  Receive Date: 20060131
  Receipt Date: 20060127
  Transmission Date: 20060701
  Serious: Yes (Hospitalization)
  Sender: FDA-Public Use
  Company Number: US-RB-2691-2006

PATIENT
  Sex: Female

DRUGS (12)
  1. BUPRENORPHINE HCL [Suspect]
     Route: 060
     Dates: start: 20051202, end: 20051204
  2. BUPRENORPHINE HCL [Suspect]
     Route: 060
     Dates: start: 20051205, end: 20051213
  3. BUPRENORPHINE HCL [Suspect]
     Route: 060
     Dates: start: 20051214, end: 20060116
  4. BUPRENORPHINE HCL [Suspect]
     Route: 060
     Dates: start: 20060125
  5. ISOSORBIDE [Concomitant]
     Route: 048
  6. CLONAZEPAM [Concomitant]
     Indication: EPILEPSY
     Route: 048
  7. MONTELUKAST [Concomitant]
     Indication: ASTHMA
     Route: 048
  8. SPIRONOLACTONE [Concomitant]
     Indication: HYPERTENSION
     Route: 048
  9. FAMOTIDINE [Concomitant]
     Route: 048
  10. LOSARTAN POTASSIUM [Concomitant]
     Indication: HYPERTENSION
     Route: 048
  11. DILTIAZEM HCL [Concomitant]
     Route: 048
  12. CILOSTAZOL [Concomitant]
     Route: 048

REACTIONS (2)
  - GRAND MAL CONVULSION [None]
  - HYPERTENSION [None]
